FAERS Safety Report 7184047-0 (Version None)
Quarter: 2010Q4

REPORT INFORMATION
  Report Type: 
  Country: None (occurrence: None)
  Receive Date: 20101222
  Receipt Date: 20101209
  Transmission Date: 20110411
  Serious: Yes (Other)
  Sender: FDA-Public Use
  Company Number: PHHY2010DE41618

PATIENT
  Sex: Male

DRUGS (7)
  1. PROVAS COMP [Suspect]
     Dosage: 1/2 DOSAGE FORM (320/12.5 MG) PER DAY
     Route: 048
  2. PROVAS [Suspect]
     Dosage: 160 MG
     Route: 048
  3. SIMVASTATIN [Concomitant]
  4. FLUVASTATIN [Concomitant]
     Dosage: ONE DOSAGE FORM DAILY
  5. ALLOBETA [Concomitant]
     Dosage: 150 MG PER DAY
  6. ASPIRIN [Concomitant]
  7. ASPIRIN [Concomitant]
     Dosage: 100 (UNKNOWN UNITS)

REACTIONS (5)
  - DIARRHOEA [None]
  - FALL [None]
  - FLATULENCE [None]
  - SURGERY [None]
  - UPPER LIMB FRACTURE [None]
